FAERS Safety Report 4519281-9 (Version None)
Quarter: 2004Q4

REPORT INFORMATION
  Report Type: 
  Country: None (occurrence: None)
  Receive Date: 20041206
  Receipt Date: 20041019
  Transmission Date: 20050328
  Serious: Yes (Death)
  Sender: FDA-Public Use
  Company Number: US-BRISTOL-MYERS SQUIBB COMPANY-12741617

PATIENT
  Age: 25 Year
  Sex: Female

DRUGS (5)
  1. ABILIFY [Suspect]
     Route: 048
  2. METHAMPHETAMINE HCL [Suspect]
     Route: 048
  3. SERTRALINE [Suspect]
     Route: 048
  4. LORATADINE [Suspect]
  5. ALPRAZOLAM [Suspect]

REACTIONS (5)
  - CARDIO-RESPIRATORY ARREST [None]
  - COMA [None]
  - DRUG TOXICITY [None]
  - MULTIPLE DRUG OVERDOSE INTENTIONAL [None]
  - THERAPY NON-RESPONDER [None]
